FAERS Safety Report 7651575-0 (Version None)
Quarter: 2011Q3

REPORT INFORMATION
  Report Type: 
  Country: None (occurrence: None)
  Receive Date: 20110802
  Receipt Date: 20110727
  Transmission Date: 20111222
  Serious: Yes (Hospitalization)
  Sender: FDA-Public Use
  Company Number: PHHO2011US12869

PATIENT
  Sex: Female
  Weight: 101 kg

DRUGS (9)
  1. QAB149 [Suspect]
     Dosage: DOUBLE BLIND
     Route: 048
     Dates: start: 20110203, end: 20110724
  2. QAB149 [Suspect]
     Dosage: NO TREATMENT
     Dates: start: 20110725, end: 20110725
  3. BUPROPION HCL [Concomitant]
     Indication: ANXIETY
     Dosage: 300 MG, QD
     Route: 048
     Dates: start: 19990101
  4. TYLENOL-500 [Concomitant]
     Dosage: 500 MG, PRN
     Route: 048
     Dates: start: 20060101
  5. LISINOPRIL [Concomitant]
     Indication: HYPERTENSION
     Dosage: 20 MG, QD
     Route: 048
     Dates: start: 20080101
  6. FLOVENT [Concomitant]
     Indication: CHRONIC OBSTRUCTIVE PULMONARY DISEASE
     Dosage: 100 UG, BID
     Dates: start: 20060101
  7. ALBUTEROL SULFATE AUTOHALER [Concomitant]
     Indication: CHRONIC OBSTRUCTIVE PULMONARY DISEASE
     Dosage: 180 UG, PRN
     Dates: start: 19960101
  8. DILTIAZEM [Concomitant]
     Indication: HYPERTENSION
     Dosage: 240 MG, QD
     Route: 048
     Dates: start: 19970101
  9. QAB149 [Suspect]
     Dosage: DOUBLE BLIND
     Route: 048
     Dates: start: 20110726

REACTIONS (1)
  - HYPOKALAEMIA [None]
